FAERS Safety Report 6985074-6 (Version None)
Quarter: 2010Q3

REPORT INFORMATION
  Report Type: 
  Country: None (occurrence: None)
  Receive Date: 20100915
  Receipt Date: 20100903
  Transmission Date: 20110219
  Serious: Yes (Hospitalization)
  Sender: FDA-Public Use
  Company Number: PHHY2010US52308

PATIENT
  Sex: Male
  Weight: 111.11 kg

DRUGS (24)
  1. EXJADE [Suspect]
     Indication: IRON OVERLOAD
     Dosage: 500 MG, BID
     Route: 048
     Dates: start: 20090220, end: 20090505
  2. EXJADE [Suspect]
     Dosage: 1000 MG, BID
     Route: 048
     Dates: start: 20091106, end: 20100816
  3. ACIPHEX [Concomitant]
     Dosage: 20 MG, QD
     Route: 048
  4. ASPIRIN [Concomitant]
     Dosage: 325 MG, QD
     Route: 048
  5. CARTIA XT [Concomitant]
     Dosage: 120 MG, UNK
     Route: 048
  6. COZAAR [Concomitant]
     Dosage: 100 MG, QD
     Route: 048
  7. DESFERAL [Concomitant]
     Dosage: 1000 MG, UNK
     Route: 042
  8. FOLIC ACID [Concomitant]
     Dosage: 1 MG, BID
     Route: 048
  9. LASIX [Concomitant]
     Dosage: 40 MG, BID
     Route: 048
  10. LIPITOR [Concomitant]
     Dosage: 80 MG, QD
     Route: 048
  11. NEORAL [Concomitant]
     Dosage: 25 MG, BID
     Route: 048
  12. NITROGLYCERIN [Concomitant]
     Dosage: 0.4 MG, UNK
     Route: 060
  13. PREDNISONE [Concomitant]
     Dosage: 5 MG, EVERY OTHER DAY
     Route: 048
  14. TUMS [Concomitant]
     Dosage: 500 MG, TID
     Route: 048
  15. VITAMIN D3 [Concomitant]
     Dosage: 1000 MG, QD
     Route: 048
  16. CIALIS [Concomitant]
     Dosage: 20 MG, PRN
     Route: 048
     Dates: start: 20090220
  17. ZETIA [Concomitant]
     Dosage: 10 MG, QD
     Route: 048
  18. CALCIUM [Concomitant]
     Route: 048
  19. CENTRUM SILVER [Concomitant]
     Route: 048
  20. ALLOPURINOL [Concomitant]
     Dosage: 1000 MG, QD
     Route: 048
  21. CEPHALEXIN [Concomitant]
     Dosage: 500 MG, QD
     Route: 048
  22. CELLCEPT [Concomitant]
     Dosage: 500 MG, BID
     Route: 048
  23. SODIUM BICARBONATE [Concomitant]
     Dosage: 650 MG, BID
     Route: 048
  24. CALCITRIOL [Concomitant]
     Dosage: 0.25 UG, QD
     Route: 048

REACTIONS (2)
  - BLOOD CREATININE INCREASED [None]
  - DIALYSIS [None]
